FAERS Safety Report 6269730-3 (Version None)
Quarter: 2009Q3

REPORT INFORMATION
  Report Type: 
  Country: None (occurrence: None)
  Receive Date: 20090716
  Receipt Date: 20090714
  Transmission Date: 20100115
  Serious: Yes (Other)
  Sender: FDA-Public Use
  Company Number: ES-WYE-G04046909

PATIENT
  Age: 81 Year
  Sex: Male

DRUGS (6)
  1. VENLAFAXINE HCL [Suspect]
     Indication: DEPRESSED MOOD
     Route: 048
     Dates: start: 20090420, end: 20090430
  2. SINTROM [Concomitant]
     Dosage: AS NECESSARY
     Route: 048
  3. ATENOLOL [Concomitant]
     Indication: HYPERTENSION
     Route: 048
     Dates: start: 20090322
  4. DIUZINE [Interacting]
     Indication: HYPERTENSION
     Route: 048
     Dates: start: 20090403, end: 20090501
  5. DIUZINE [Interacting]
     Dosage: UNKNOWN
     Route: 048
  6. AMLODIPINE [Concomitant]
     Indication: HYPERTENSION
     Route: 048
     Dates: start: 20090323

REACTIONS (3)
  - DRUG INTERACTION [None]
  - HYPONATRAEMIA [None]
  - INAPPROPRIATE ANTIDIURETIC HORMONE SECRETION [None]
